FAERS Safety Report 7272361-X (Version None)
Quarter: 2011Q1

REPORT INFORMATION
  Report Type: 
  Country: None (occurrence: None)
  Receive Date: 20110203
  Receipt Date: 20110131
  Transmission Date: 20110831
  Serious: Yes (Death, Hospitalization)
  Sender: FDA-Public Use
  Company Number: PHHY2010US79458

PATIENT
  Sex: Male
  Weight: 87.528 kg

DRUGS (1)
  1. EXJADE [Suspect]
     Indication: MYELODYSPLASTIC SYNDROME
     Dosage: 250 MG, QD
     Route: 048

REACTIONS (5)
  - MYOCARDIAL INFARCTION [None]
  - HYPOTENSION [None]
  - ANAEMIA [None]
  - CARDIAC ARREST [None]
  - GASTROINTESTINAL HAEMORRHAGE [None]
